FAERS Safety Report 14756871 (Version 1)
Quarter: 2018Q2

REPORT INFORMATION
  Report Type: Spontaneous
  Country: US (occurrence: US)
  Receive Date: 20180413
  Receipt Date: 20180413
  Transmission Date: 20180711
  Serious: Yes (Life-Threatening)
  Sender: FDA-Public Use
  Company Number: PHHY2018US058738

PATIENT
  Age: 10 Year
  Sex: Male

DRUGS (7)
  1. VINCRISTINE [Concomitant]
     Active Substance: VINCRISTINE
     Indication: B PRECURSOR TYPE ACUTE LEUKAEMIA
     Dosage: 1.5 MG/M2/DOSE, QW ON DAYS 4, 11, 18, AND 25
     Route: 042
  2. RIFAMPICIN [Suspect]
     Active Substance: RIFAMPIN
     Indication: MENINGITIS BACTERIAL
     Route: 065
  3. RIFAMPICIN [Suspect]
     Active Substance: RIFAMPIN
     Indication: STOMATOCOCCAL INFECTION
  4. DOXORUBICIN [Concomitant]
     Active Substance: DOXORUBICIN
     Indication: B PRECURSOR TYPE ACUTE LEUKAEMIA
     Dosage: 30 MG/M2/DOSE, ON DAYS 4 AND 5
     Route: 042
  5. AFINITOR [Suspect]
     Active Substance: EVEROLIMUS
     Indication: B PRECURSOR TYPE ACUTE LEUKAEMIA
     Dosage: UNK UNK, QD (24 DOSES)
     Route: 048
  6. PEGASPARGASE [Concomitant]
     Active Substance: PEGASPARGASE
     Indication: B PRECURSOR TYPE ACUTE LEUKAEMIA
     Dosage: 2500 IU/M2/DOSE, ON DAYS 5 AND 18
     Route: 042
  7. DEXRAZOXANE. [Concomitant]
     Active Substance: DEXRAZOXANE
     Indication: B PRECURSOR TYPE ACUTE LEUKAEMIA
     Dosage: 300 MG/M2/DOSE, ON DAYS 4 AND 5
     Route: 065

REACTIONS (4)
  - Meningitis bacterial [Unknown]
  - Product use in unapproved indication [Unknown]
  - Stomatococcal infection [Unknown]
  - Hyperbilirubinaemia [Recovering/Resolving]
